FAERS Safety Report 9882924 (Version 1)
Quarter: 2014Q1

REPORT INFORMATION
  Report Type: Spontaneous
  Country: US (occurrence: US)
  Receive Date: 20140207
  Receipt Date: 20140207
  Transmission Date: 20141002
  Serious: No
  Sender: FDA-Public Use
  Company Number: US-ACORDA-ACO_39015_2013

PATIENT
  Sex: Female
  Weight: 58.5 kg

DRUGS (2)
  1. AMPYRA [Suspect]
     Indication: GAIT DISTURBANCE
     Dosage: 10 MG, BID
     Dates: start: 2013, end: 2013
  2. ALL OTHER THERAPEUTIC PRODUCTS [Concomitant]
     Indication: MULTIPLE SCLEROSIS

REACTIONS (4)
  - Weight decreased [Recovered/Resolved]
  - Malaise [Unknown]
  - Pain in extremity [Recovering/Resolving]
  - Burning sensation [Recovering/Resolving]
